FAERS Safety Report 17910843 (Version 5)
Quarter: 2020Q4

REPORT INFORMATION
  Report Type: Spontaneous
  Country: US (occurrence: US)
  Receive Date: 20200618
  Receipt Date: 20201119
  Transmission Date: 20210113
  Serious: Yes (Other)
  Sender: FDA-Public Use
  Company Number: US-GLAXOSMITHKLINE-US2020AMR103180

PATIENT
  Sex: Female

DRUGS (2)
  1. ZEJULA [Suspect]
     Active Substance: NIRAPARIB
     Indication: OVARIAN CANCER
     Dosage: 200 MG, QD
     Route: 048
     Dates: start: 20200610, end: 20200618
  2. ZEJULA [Suspect]
     Active Substance: NIRAPARIB
     Dosage: 200 MG, QD
     Dates: start: 20200619

REACTIONS (10)
  - Heart rate increased [Unknown]
  - Product dose omission issue [Unknown]
  - Blood pressure increased [Recovering/Resolving]
  - Insomnia [Not Recovered/Not Resolved]
  - Fatigue [Unknown]
  - Carbohydrate antigen 125 increased [Not Recovered/Not Resolved]
  - Eye haemorrhage [Unknown]
  - Underdose [Unknown]
  - Dry mouth [Unknown]
  - Condition aggravated [Not Recovered/Not Resolved]
